FAERS Safety Report 11212477 (Version 2)
Quarter: 2015Q4

REPORT INFORMATION
  Report Type: Spontaneous
  Country: US (occurrence: US)
  Receive Date: 20150623
  Receipt Date: 20151110
  Transmission Date: 20160304
  Serious: No
  Sender: FDA-Public Use
  Company Number: US-009507513-1505USA014039

PATIENT
  Age: 24 Year
  Sex: Female
  Weight: 86.17 kg

DRUGS (1)
  1. NEXPLANON [Suspect]
     Active Substance: ETONOGESTREL
     Indication: CONTRACEPTION
     Dosage: LEFT ARM
     Route: 059
     Dates: start: 20131212, end: 20150522

REACTIONS (3)
  - Limb injury [Recovered/Resolved]
  - Device breakage [Recovered/Resolved]
  - Uterine haemorrhage [Recovered/Resolved]

NARRATIVE: CASE EVENT DATE: 20150420
